FAERS Safety Report 5729857-9 (Version None)
Quarter: 2008Q2

REPORT INFORMATION
  Report Type: 
  Country: None (occurrence: None)
  Receive Date: 20080502
  Receipt Date: 20080423
  Transmission Date: 20081010
  Serious: Yes (Hospitalization)
  Sender: FDA-Public Use
  Company Number: 2008US001196

PATIENT
  Age: 66 Year
  Sex: Male

DRUGS (3)
  1. PROGRAF [Suspect]
     Indication: RENAL TRANSPLANT
  2. SIROLIMUS(SIROLIMUS) [Suspect]
     Indication: RENAL TRANSPLANT
  3. MYCOPHENOLATE MOFETIL [Suspect]
     Indication: RENAL TRANSPLANT

REACTIONS (10)
  - ANAEMIA [None]
  - COMPLICATIONS OF TRANSPLANTED LIVER [None]
  - ENTEROCOCCAL INFECTION [None]
  - HAEMATOMA [None]
  - IMPAIRED HEALING [None]
  - POST PROCEDURAL COMPLICATION [None]
  - RENAL TUBULAR NECROSIS [None]
  - WOUND DEHISCENCE [None]
  - WOUND INFECTION [None]
  - WOUND INFECTION STAPHYLOCOCCAL [None]
